FAERS Safety Report 9702056 (Version 2)
Quarter: 2013Q4

REPORT INFORMATION
  Report Type: Spontaneous
  Country: JP (occurrence: JP)
  Receive Date: 20131121
  Receipt Date: 20131129
  Transmission Date: 20140711
  Serious: Yes (Death, Hospitalization)
  Sender: FDA-Public Use
  Company Number: PHHY2013JP132951

PATIENT
  Sex: Male

DRUGS (5)
  1. NEORAL [Suspect]
     Indication: PEMPHIGOID
     Dosage: 100 MG, DAILY
     Route: 048
     Dates: start: 201106, end: 201108
  2. NEORAL [Suspect]
     Dosage: 200 MG, PER DAY
     Route: 048
     Dates: start: 201108, end: 201112
  3. BETAMETHASONE [Suspect]
     Indication: PEMPHIGOID
     Dosage: 3 MG, PER DAY
     Route: 048
     Dates: start: 201201, end: 201210
  4. AZATHIOPRINE [Suspect]
     Indication: PEMPHIGOID
     Dosage: 50 MG, PER DAY
     Route: 048
     Dates: start: 201201, end: 201210
  5. PREDNISOLONE [Suspect]
     Indication: PEMPHIGOID
     Dosage: 60 MG, PER DAY
     Dates: start: 2011

REACTIONS (6)
  - Epstein-Barr virus associated lymphoma [Fatal]
  - Altered state of consciousness [Fatal]
  - Pyrexia [Unknown]
  - Pneumonia [Unknown]
  - Cellulitis [Unknown]
  - Pneumonia cytomegaloviral [Unknown]
